FAERS Safety Report 16866430 (Version 1)
Quarter: 2019Q3

REPORT INFORMATION
  Report Type: Spontaneous
  Country: US (occurrence: US)
  Receive Date: 20190930
  Receipt Date: 20190930
  Transmission Date: 20191005
  Serious: No
  Sender: FDA-Public Use
  Company Number: US-ALLERGAN-1933446US

PATIENT

DRUGS (2)
  1. CARIPRAZINE HCL UNK [Suspect]
     Active Substance: CARIPRAZINE HYDROCHLORIDE
     Indication: HALLUCINATION, AUDITORY
  2. ZYPREXA [Concomitant]
     Active Substance: OLANZAPINE
     Indication: HALLUCINATION, AUDITORY

REACTIONS (1)
  - Off label use [Unknown]
